FAERS Safety Report 4279946-3 (Version None)
Quarter: 2004Q1

REPORT INFORMATION
  Report Type: 
  Country: None (occurrence: None)
  Receive Date: 20040126
  Receipt Date: 20040114
  Transmission Date: 20041129
  Serious: Yes (Death, Hospitalization)
  Sender: FDA-Public Use
  Company Number: 2004194529AT

PATIENT
  Age: 84 Year
  Sex: Female
  Weight: 54 kg

DRUGS (7)
  1. AROMASIN [Suspect]
     Indication: BREAST CANCER
     Dosage: 25 MG, QD, ORAL
     Route: 048
     Dates: start: 20030725, end: 20031125
  2. MARCUMAR [Suspect]
  3. ISOPTIN [Concomitant]
  4. MOLSIDOLAT [Concomitant]
  5. LANITOP (METILDIGOXIN) [Concomitant]
  6. ATORVASTATIN (ATORVASTATIN) [Concomitant]
  7. UROSIN [Concomitant]

REACTIONS (6)
  - CARDIAC FAILURE [None]
  - ENDOMETRIAL CANCER [None]
  - PNEUMONIA [None]
  - PNEUMONITIS [None]
  - PULMONARY OEDEMA [None]
  - VAGINAL HAEMORRHAGE [None]
